FAERS Safety Report 15794381 (Version 1)
Quarter: 2018Q4

REPORT INFORMATION
  Report Type: Spontaneous
  Country: US (occurrence: US)
  Receive Date: 20181213
  Receipt Date: 20181213
  Transmission Date: 20190205
  Serious: Yes (Hospitalization)
  Sender: FDA-Public Use
  Company Number: None

PATIENT
  Age: 51 Year
  Sex: Male
  Weight: 83.46 kg

DRUGS (1)
  1. CEFTRIAXONE. [Suspect]
     Active Substance: CEFTRIAXONE
     Indication: RASH
     Route: 042
     Dates: start: 20180829, end: 20180829

REACTIONS (3)
  - Pruritus [None]
  - Erythema multiforme [None]
  - Urticaria [None]

NARRATIVE: CASE EVENT DATE: 20180829
